FAERS Safety Report 9912241 (Version 1)
Quarter: 2014Q1

REPORT INFORMATION
  Report Type: Spontaneous
  Country: US (occurrence: US)
  Receive Date: 20140220
  Receipt Date: 20140220
  Transmission Date: 20141002
  Serious: No
  Sender: FDA-Public Use
  Company Number: US-SA-2013SA124002

PATIENT
  Age: 60 Year
  Sex: Male

DRUGS (2)
  1. ZALTRAP [Suspect]
     Route: 065
  2. ZALTRAP [Suspect]
     Route: 065

REACTIONS (1)
  - Epistaxis [Unknown]
